FAERS Safety Report 7469427 (Version 4)
Quarter: 2015Q1

REPORT INFORMATION
  Report Type: Spontaneous
  Country: JP (occurrence: None)
  Receive Date: 20100630
  Receipt Date: 20150316
  Transmission Date: 20150721
  Serious: Yes (Hospitalization, Other)
  Sender: FDA-Public Use
  Company Number: 2010JP003595

PATIENT
  Age: 15 Year
  Sex: Female
  Weight: 63 kg

DRUGS (29)
  1. PROGRAF [Suspect]
     Active Substance: TACROLIMUS\TACROLIMUS ANHYDROUS
     Indication: LUPUS NEPHRITIS
     Route: 048
     Dates: start: 20080520, end: 20111120
  2. SELBEX (TEPRENONE) [Concomitant]
     Active Substance: TEPRENONE
  3. WYPAX (LORAZEPAM) [Concomitant]
  4. BACTRAMIN (SULFAMETHOXAZOLE_TRIMETHOPRIM) [Concomitant]
  5. PARIET (RABEPRAZOLE SODIUM) (20 MG, GASTRO-RESISTANT TABLET) (RABEPRAZOLE SODIUM) [Concomitant]
     Active Substance: RABEPRAZOLE SODIUM
  6. RIZE (CLOTIAZEPAM) [Concomitant]
  7. PREDNISOLONE. [Suspect]
     Active Substance: PREDNISOLONE
     Indication: LUPUS NEPHRITIS
     Dosage: 40 MG, ORAL; 36 MG, ORAL; 12 MG, ORAL; 11 MG, ORAL; 10 MG, ORAL; 9 MG, ORAL
     Route: 048
     Dates: end: 20080520
  8. ONEALFA [Concomitant]
     Active Substance: ALFACALCIDOL
  9. VOLTAREN [Concomitant]
     Active Substance: DICLOFENAC SODIUM
  10. FERROMIA (FERROUS SODIUM CITRATE) [Concomitant]
  11. ENDOXAN (CYCLOPHOSPHAMIDE) [Concomitant]
     Active Substance: CYCLOPHOSPHAMIDE
  12. WARFARIN [Concomitant]
     Active Substance: WARFARIN
  13. IMURAN [Concomitant]
     Active Substance: AZATHIOPRINE
  14. LYRICA [Concomitant]
     Active Substance: PREGABALIN
  15. ENDOXAN (CYCLOPHOSPHAMIDE MONOHYDRATE) [Concomitant]
  16. PREDNISOLONE. [Suspect]
     Active Substance: PREDNISOLONE
     Indication: PYREXIA
     Dosage: 40 MG, ORAL; 36 MG, ORAL; 12 MG, ORAL; 11 MG, ORAL; 10 MG, ORAL; 9 MG, ORAL
     Route: 048
     Dates: end: 20080520
  17. NU-LOTAN (LOSARTAN POTASSIUM) [Concomitant]
  18. MUCOSTA (REBAMIPIDE) [Concomitant]
  19. LIPOVAS (SIMVASTATIN) [Concomitant]
  20. RIVOTRIL [Concomitant]
     Active Substance: CLONAZEPAM
  21. GASLON [Concomitant]
     Active Substance: IRSOGLADINE MALEATE
  22. TRAMCET [Suspect]
     Active Substance: ACETAMINOPHEN\TRAMADOL
     Indication: PRODUCT USED FOR UNKNOWN INDICATION
     Route: 048
     Dates: start: 20121022
  23. METHYLPREDNISOLONE. [Suspect]
     Active Substance: METHYLPREDNISOLONE
     Indication: LUPUS NEPHRITIS
     Route: 048
     Dates: start: 20080528, end: 20080603
  24. BENET (RISEDRONATE SODIUM) [Concomitant]
  25. TRYPTANOL (AMITRIPTYLINE HYDROCHLORIDE) [Concomitant]
  26. BACTRAMIN (SULFAMETHOXAZOLE, TRIMETHOPRIM) [Concomitant]
  27. FOSAMAC (ALENDRONATE SODIUM) [Concomitant]
  28. CRESTOR [Concomitant]
     Active Substance: ROSUVASTATIN CALCIUM
  29. LOXONIN (LOXOPROFEN SODIUM) [Concomitant]
     Active Substance: LOXOPROFEN SODIUM

REACTIONS (8)
  - Hypoaesthesia [None]
  - Pyrexia [None]
  - Nausea [None]
  - Osteonecrosis [None]
  - Essential tremor [None]
  - Blood immunoglobulin G increased [None]
  - Condition aggravated [None]
  - Intentional product misuse [None]

NARRATIVE: CASE EVENT DATE: 20080716
